FAERS Safety Report 8507964-5 (Version None)
Quarter: 2012Q3

REPORT INFORMATION
  Report Type: 
  Country: None (occurrence: None)
  Receive Date: 20120713
  Receipt Date: 20120706
  Transmission Date: 20120928
  Serious: Yes (Hospitalization)
  Sender: FDA-Public Use
  Company Number: US-BAYER-2012-055464

PATIENT
  Age: 26 Year
  Sex: Female
  Weight: 134.69 kg

DRUGS (11)
  1. YAZ [Suspect]
     Indication: CONTRACEPTION
     Dosage: UNK
  2. FENTANYL [Concomitant]
     Dosage: UNK
     Route: 062
  3. NEXIUM [Concomitant]
     Dosage: 40 MG, UNK
  4. DILAUDID [Concomitant]
     Dosage: UNK
  5. YASMIN [Suspect]
     Indication: PREMENSTRUAL SYNDROME
     Dosage: UNK
     Dates: start: 20040214, end: 20060207
  6. DROSPIRENONE AND ETHINYL ESTRADIOL [Suspect]
     Dosage: UNK
     Dates: start: 20100819, end: 20101202
  7. ZOLOFT [Concomitant]
     Dosage: 50 MG, UNK
  8. YASMIN [Suspect]
     Indication: ACNE
     Dosage: UNK
  9. SERTRALINE HYDROCHLORIDE [Concomitant]
     Dosage: 50 MG, UNK
     Dates: start: 20100723, end: 20120326
  10. TYLENOL W/ CODEINE NO. 3 [Concomitant]
     Dosage: UNK
  11. SOMA [Concomitant]
     Dosage: UNK

REACTIONS (2)
  - OEDEMA PERIPHERAL [None]
  - DEEP VEIN THROMBOSIS [None]
